FAERS Safety Report 8905610 (Version 1)
Quarter: 2012Q4

REPORT INFORMATION
  Report Type: 
  Country: CA (occurrence: CA)
  Receive Date: 20121109
  Receipt Date: 20121109
  Transmission Date: 20130627
  Serious: Yes (Hospitalization)
  Sender: FDA-Public Use
  Company Number: PHHY2012CA102529

PATIENT
  Age: 55 Year
  Sex: Female

DRUGS (5)
  1. GILENYA [Suspect]
     Indication: RELAPSING-REMITTING MULTIPLE SCLEROSIS
     Dosage: 0.5 mg, QD
     Route: 048
     Dates: start: 20120119
  2. GILENYA [Suspect]
     Dosage: 0.5 mg, BID ( patient took Gilenya in the morning as usual, however she took it again in the evenin)
     Route: 048
     Dates: start: 20120204
  3. GILENYA [Suspect]
     Dosage: 0.5 mg, QD
     Route: 048
  4. LYRICA [Concomitant]
  5. ALERTEC [Concomitant]

REACTIONS (4)
  - Palpitations [Recovering/Resolving]
  - Dizziness [Recovering/Resolving]
  - Nasopharyngitis [Recovering/Resolving]
  - Oropharyngeal pain [Recovering/Resolving]
